FAERS Safety Report 8407039-X (Version None)
Quarter: 2012Q2

REPORT INFORMATION
  Report Type: 
  Country: None (occurrence: None)
  Receive Date: 20120604
  Receipt Date: 20120531
  Transmission Date: 20120825
  Serious: Yes (Other)
  Sender: FDA-Public Use
  Company Number: PHHY2011US56604

PATIENT
  Sex: Female

DRUGS (2)
  1. GILENYA [Suspect]
     Dosage: 0.5 MG, DAILY
     Route: 048
  2. GILENYA [Suspect]
     Dosage: 0.5 MG, DAILY
     Route: 048

REACTIONS (9)
  - DISORIENTATION [None]
  - DIZZINESS [None]
  - HAEMATEMESIS [None]
  - HEART RATE INCREASED [None]
  - MALAISE [None]
  - ASTHENIA [None]
  - SPEECH DISORDER [None]
  - FATIGUE [None]
  - HYPERSOMNIA [None]
